FAERS Safety Report 8802814 (Version 7)
Quarter: 2013Q3

REPORT INFORMATION
  Report Type: Spontaneous
  Country: US (occurrence: US)
  Receive Date: 20120921
  Receipt Date: 20130703
  Transmission Date: 20140515
  Serious: Yes (Hospitalization, Other)
  Sender: FDA-Public Use
  Company Number: US-009507513-1209USA004684

PATIENT
  Sex: Female

DRUGS (6)
  1. FOSAMAX [Suspect]
     Indication: OSTEOPENIA
     Dosage: 70 MG, QW
     Route: 048
     Dates: start: 20010608, end: 200911
  2. FOSAMAX [Suspect]
     Indication: OSTEOPOROSIS
     Dosage: 10 MG, QAM
     Route: 048
  3. ALENDRONATE SODIUM [Suspect]
     Indication: OSTEOPENIA
     Dosage: 70 MG, QW
     Route: 048
     Dates: start: 200911, end: 201012
  4. VITAMIN E [Concomitant]
     Dosage: 400 IU, QD
     Dates: start: 2000
  5. ENZYMATIC THERAPY OSTEOPRIME [Concomitant]
     Dosage: 800 MG, QID
     Dates: start: 2000, end: 201301
  6. PYRIDOXINE [Concomitant]
     Dosage: 100 MG, QD
     Dates: start: 2000

REACTIONS (19)
  - Intramedullary rod insertion [Unknown]
  - Urinary tract infection [Unknown]
  - Urinary tract infection bacterial [Unknown]
  - Surgery [Unknown]
  - Femur fracture [Recovered/Resolved]
  - Hypothyroidism [Unknown]
  - Adverse event [Unknown]
  - Fall [Unknown]
  - Meniscus injury [Unknown]
  - Arthroscopy [Unknown]
  - Medical device removal [Unknown]
  - Migraine [Unknown]
  - Synovial cyst [Unknown]
  - Carpal tunnel syndrome [Unknown]
  - Anal infection [Unknown]
  - Anaemia [Unknown]
  - Peptic ulcer [Unknown]
  - Abdominal pain upper [Unknown]
  - Gastrooesophageal reflux disease [Unknown]
